FAERS Safety Report 8777205 (Version 1)
Quarter: 2012Q4

REPORT INFORMATION
  Report Type: Report from Study
  Country: CA (occurrence: CA)
  Receive Date: 20120911
  Receipt Date: 20120911
  Transmission Date: 20130627
  Serious: Yes (Hospitalization, Other)
  Sender: FDA-Public Use
  Company Number: CA-ABBOTT-12P-028-0977036-00

PATIENT
  Sex: Male

DRUGS (1)
  1. HUMIRA PRE-FILLED SYRINGE [Suspect]
     Indication: RHEUMATOID ARTHRITIS
     Route: 058
     Dates: start: 20051208, end: 20120720

REACTIONS (3)
  - Loss of consciousness [Unknown]
  - Staphylococcal infection [Unknown]
  - Necrotising fasciitis [Unknown]
